FAERS Safety Report 4338503-0 (Version None)
Quarter: 2004Q2

REPORT INFORMATION
  Report Type: 
  Country: None (occurrence: None)
  Receive Date: 20040414
  Receipt Date: 20040401
  Transmission Date: 20050107
  Serious: Yes (Hospitalization)
  Sender: FDA-Public Use
  Company Number: CH-GLAXOSMITHKLINE-B0328941A

PATIENT
  Sex: Male

DRUGS (7)
  1. DEROXAT [Suspect]
     Indication: DEPRESSION
     Dosage: 20MG UNKNOWN
     Route: 058
  2. SINTROM [Suspect]
     Indication: PROPHYLAXIS
     Route: 048
     Dates: end: 20040219
  3. LASIX [Concomitant]
     Indication: DRUG USE FOR UNKNOWN INDICATION
     Dosage: 20MG UNKNOWN
     Route: 048
     Dates: end: 20040219
  4. DILATREND [Concomitant]
     Indication: DRUG USE FOR UNKNOWN INDICATION
     Dosage: 6.25MG UNKNOWN
     Route: 048
     Dates: end: 20040219
  5. PROSCAR [Concomitant]
     Indication: DRUG USE FOR UNKNOWN INDICATION
     Dosage: 5MG UNKNOWN
     Route: 048
     Dates: end: 20040219
  6. PRAVASTATIN [Concomitant]
     Indication: DRUG USE FOR UNKNOWN INDICATION
     Dosage: 20MG THREE TIMES PER WEEK
     Route: 048
  7. AMARYL [Concomitant]
     Indication: DRUG USE FOR UNKNOWN INDICATION
     Dosage: 2MG UNKNOWN
     Route: 048

REACTIONS (5)
  - DRUG INTERACTION [None]
  - DYSPHAGIA [None]
  - DYSPHASIA [None]
  - HEMIPARESIS [None]
  - SUBDURAL HAEMATOMA [None]
